FAERS Safety Report 21915907 (Version 2)
Quarter: 2023Q1

REPORT INFORMATION
  Report Type: Spontaneous
  Country: JP (occurrence: JP)
  Receive Date: 20230126
  Receipt Date: 20230127
  Transmission Date: 20230418
  Serious: Yes (Death)
  Sender: FDA-Public Use
  Company Number: JP-BAYER-2023A010581

PATIENT
  Age: 8 Decade
  Sex: Male

DRUGS (1)
  1. JIVI [Suspect]
     Active Substance: DAMOCTOCOG ALFA PEGOL
     Indication: Haemophilia
     Dosage: 3000IU, OW

REACTIONS (1)
  - Pneumonia [Fatal]
